FAERS Safety Report 5706762-5 (Version None)
Quarter: 2008Q2

REPORT INFORMATION
  Report Type: 
  Country: None (occurrence: None)
  Receive Date: 20080415
  Receipt Date: 20080415
  Transmission Date: 20081010
  Serious: Yes (Hospitalization)
  Sender: FDA-Public Use
  Company Number: None

PATIENT
  Age: 64 Year
  Sex: Female
  Weight: 133 kg

DRUGS (1)
  1. DILAUDID [Suspect]
     Indication: POSTOPERATIVE ANALGESIA
     Dosage: 0.3 MG EVERY 20 MINUTES IV
     Route: 042
     Dates: start: 20080225, end: 20080226

REACTIONS (3)
  - HYPOTENSION [None]
  - LETHARGY [None]
  - MENTAL STATUS CHANGES [None]
